FAERS Safety Report 13129846 (Version 1)
Quarter: 2017Q1

REPORT INFORMATION
  Report Type: Spontaneous
  Country: US (occurrence: US)
  Receive Date: 20170118
  Receipt Date: 20170118
  Transmission Date: 20170428
  Serious: Yes (Disabling, Other)
  Sender: FDA-Public Use
  Company Number: None

PATIENT
  Age: 59 Year
  Sex: Female
  Weight: 64.8 kg

DRUGS (2)
  1. KYPROLIS [Suspect]
     Active Substance: CARFILZOMIB
     Indication: PLASMA CELL MYELOMA
     Dosage: ?          OTHER FREQUENCY:DAYS 1,2,8,9,15,16;?
     Route: 042
     Dates: start: 20160509, end: 20170116
  2. CARFILZOMIB [Concomitant]
     Active Substance: CARFILZOMIB

REACTIONS (1)
  - Cardiomyopathy [None]

NARRATIVE: CASE EVENT DATE: 20170116
